FAERS Safety Report 4688770-9 (Version None)
Quarter: 2005Q2

REPORT INFORMATION
  Report Type: 
  Country: None (occurrence: None)
  Receive Date: 20050613
  Receipt Date: 20050414
  Transmission Date: 20051028
  Serious: Yes (Hospitalization)
  Sender: FDA-Public Use
  Company Number: ESWYE591415APR05

PATIENT
  Age: 44 Year
  Sex: Male

DRUGS (5)
  1. ENBREL [Suspect]
     Indication: PSORIATIC ARTHROPATHY
     Route: 058
     Dates: end: 20050412
  2. ENALAPRIL MALEATE [Concomitant]
     Indication: HYPERTENSION
     Route: 048
  3. DICLOFENAC SODIUM [Concomitant]
     Dosage: UNKNOWN
  4. OMEPRAZOLE [Concomitant]
     Dosage: UNKNOWN
  5. METHOTREXATE [Concomitant]
     Route: 058

REACTIONS (1)
  - AMYOTROPHIC LATERAL SCLEROSIS [None]
